FAERS Safety Report 16751034 (Version 1)
Quarter: 2019Q3

REPORT INFORMATION
  Report Type: Spontaneous
  Country: US (occurrence: US)
  Receive Date: 20190828
  Receipt Date: 20190828
  Transmission Date: 20191005
  Serious: No
  Sender: FDA-Public Use
  Company Number: US-TEVA-2019-US-1097719

PATIENT
  Sex: Female

DRUGS (1)
  1. CLONIDINE TEVA [Suspect]
     Active Substance: CLONIDINE
     Indication: HYPERTENSION
     Route: 062
     Dates: start: 20190810

REACTIONS (7)
  - Blood pressure increased [Unknown]
  - Urticaria [Unknown]
  - Pruritus [Unknown]
  - Product substitution issue [Unknown]
  - Product adhesion issue [Unknown]
  - Drug ineffective [Unknown]
  - Burning sensation [Unknown]
